FAERS Safety Report 18567099 (Version 5)
Quarter: 2021Q1

REPORT INFORMATION
  Report Type: Other
  Country: LB (occurrence: LB)
  Receive Date: 20201202
  Receipt Date: 20210322
  Transmission Date: 20210419
  Serious: Yes (Hospitalization, Other)
  Sender: FDA-Public Use
  Company Number: LB-ROCHE-2721693

PATIENT
  Age: 56 Year
  Sex: Female

DRUGS (5)
  1. METRONIDAZOL [Concomitant]
     Active Substance: METRONIDAZOLE
     Route: 048
     Dates: start: 20210314
  2. PERJETA [Suspect]
     Active Substance: PERTUZUMAB
     Indication: BREAST CANCER METASTATIC
     Route: 042
     Dates: start: 20200725
  3. RABEPRAZOL [Concomitant]
     Active Substance: RABEPRAZOLE
     Route: 048
     Dates: start: 20210314
  4. HERCEPTIN [Suspect]
     Active Substance: TRASTUZUMAB
     Indication: BREAST CANCER METASTATIC
     Route: 042
     Dates: start: 20170725, end: 20200609
  5. HERCEPTIN [Suspect]
     Active Substance: TRASTUZUMAB
     Indication: BREAST CANCER METASTATIC
     Route: 058
     Dates: start: 20200609

REACTIONS (4)
  - COVID-19 [Recovered/Resolved]
  - Gastrointestinal fungal infection [Not Recovered/Not Resolved]
  - Diarrhoea [Recovering/Resolving]
  - Abdominal pain [Recovering/Resolving]

NARRATIVE: CASE EVENT DATE: 20201124
